FAERS Safety Report 8351868-8 (Version None)
Quarter: 2012Q2

REPORT INFORMATION
  Report Type: 
  Country: None (occurrence: None)
  Receive Date: 20120511
  Receipt Date: 20120504
  Transmission Date: 20120825
  Serious: Yes (Hospitalization, Other)
  Sender: FDA-Public Use
  Company Number: ES-AMGEN-ESPSP2012028439

PATIENT
  Age: 35 Year
  Sex: Female

DRUGS (18)
  1. DARBEPOETIN ALFA [Suspect]
     Dosage: 150 MUG, QWK
  2. VITAMIN B COMPLEX CAP [Concomitant]
  3. IRON                               /00023503/ [Concomitant]
     Dosage: 200 UNK, QMO
     Route: 042
  4. CALCITRIOL [Concomitant]
     Indication: HYPERPARATHYROIDISM SECONDARY
  5. DALTEPARIN SODIUM [Concomitant]
     Indication: ANTICOAGULANT THERAPY
     Dosage: 2500 IU, UNK
  6. DARBEPOETIN ALFA [Suspect]
     Dosage: 100 MUG, QWK
  7. IRON                               /00023503/ [Concomitant]
     Dosage: 400 UNK, QMO
     Route: 042
  8. FOLIC ACID [Concomitant]
  9. ALLOPURINOL [Concomitant]
     Indication: HYPERURICAEMIA
  10. DARBEPOETIN ALFA [Suspect]
     Dosage: 80 MUG, QWK
  11. IRON                               /00023503/ [Concomitant]
     Dosage: 200 UNK, QMO
     Route: 042
  12. IRON                               /00023503/ [Concomitant]
     Dosage: 200 UNK, QMO
     Route: 042
  13. IRON                               /00023503/ [Concomitant]
     Dosage: 800 UNK, QMO
     Route: 042
  14. DALTEPARIN SODIUM [Concomitant]
     Dosage: 5000 UNK, UNK
  15. CORTICOSTEROIDS [Concomitant]
  16. DARBEPOETIN ALFA [Suspect]
     Indication: ANAEMIA
     Dosage: 60 MUG, QWK
     Dates: start: 20080701
  17. DARBEPOETIN ALFA [Suspect]
     Dosage: 120 MUG, QWK
  18. IRON                               /00023503/ [Concomitant]
     Indication: ANAEMIA
     Dosage: 800 UNK, QMO
     Route: 042

REACTIONS (5)
  - ANAEMIA [None]
  - GRAFT THROMBOSIS [None]
  - POLYHYDRAMNIOS [None]
  - PREMATURE DELIVERY [None]
  - HYPERTENSION [None]
